FAERS Safety Report 24159750 (Version 2)
Quarter: 2024Q3

REPORT INFORMATION
  Report Type: Spontaneous
  Country: JP (occurrence: JP)
  Receive Date: 20240731
  Receipt Date: 20240830
  Transmission Date: 20241016
  Serious: Yes (Other)
  Sender: MERCK
  Company Number: JP-MSD-M2024-29705

PATIENT
  Age: 90 Year
  Sex: Female

DRUGS (1)
  1. DAYVIGO [Suspect]
     Active Substance: LEMBOREXANT
     Indication: Insomnia
     Dosage: 25 MILLIGRAM, QD
     Route: 048

REACTIONS (6)
  - Altered state of consciousness [Unknown]
  - Delirium [Unknown]
  - Renal impairment [Unknown]
  - Dehydration [Unknown]
  - Somnolence [Unknown]
  - Overdose [Unknown]
